FAERS Safety Report 23828457 (Version 1)
Quarter: 2024Q2

REPORT INFORMATION
  Report Type: Spontaneous
  Country: FR (occurrence: FR)
  Receive Date: 20240508
  Receipt Date: 20240508
  Transmission Date: 20240716
  Serious: Yes (Other)
  Sender: FDA-Public Use
  Company Number: FR-SA-SAC20240430000897

PATIENT
  Sex: Male

DRUGS (1)
  1. DUPIXENT [Suspect]
     Active Substance: DUPILUMAB
     Indication: Dermatitis atopic
     Dosage: UNK
     Route: 058
     Dates: start: 20230502

REACTIONS (5)
  - Seizure [Recovering/Resolving]
  - Dyspepsia [Recovering/Resolving]
  - Presyncope [Recovering/Resolving]
  - Condition aggravated [Recovering/Resolving]
  - Vomiting [Recovering/Resolving]
